FAERS Safety Report 25090604 (Version 2)
Quarter: 2025Q1

REPORT INFORMATION
  Report Type: Spontaneous
  Country: US (occurrence: US)
  Receive Date: 20250318
  Receipt Date: 20250325
  Transmission Date: 20250409
  Serious: Yes (Hospitalization, Other)
  Sender: SANOFI AVENTIS
  Company Number: US-SA-2025SA079166

PATIENT
  Sex: Female
  Weight: 72.27 kg

DRUGS (19)
  1. DUPIXENT [Suspect]
     Active Substance: DUPILUMAB
     Indication: Dermatitis atopic
     Dosage: 300 MG, QOW
     Route: 058
     Dates: start: 202309
  2. ACETAMINOPHEN\HYDROCODONE [Concomitant]
     Active Substance: ACETAMINOPHEN\HYDROCODONE
  3. IBUPROFEN [Concomitant]
     Active Substance: IBUPROFEN
  4. LIDOCAINE [Concomitant]
     Active Substance: LIDOCAINE
  5. ACETAMINOPHEN [Concomitant]
     Active Substance: ACETAMINOPHEN
  6. PREGABALIN [Concomitant]
     Active Substance: PREGABALIN
  7. ROSUVASTATIN CALCIUM [Concomitant]
     Active Substance: ROSUVASTATIN CALCIUM
  8. ESCITALOPRAM OXALATE [Concomitant]
     Active Substance: ESCITALOPRAM OXALATE
  9. BUPROPION [Concomitant]
     Active Substance: BUPROPION
  10. VALACYCLOVIR [Concomitant]
     Active Substance: VALACYCLOVIR HYDROCHLORIDE
  11. LANTUS SOLOSTAR [Concomitant]
     Active Substance: INSULIN GLARGINE
  12. CALCITRIOL [Concomitant]
     Active Substance: CALCITRIOL
  13. CALCITRIOL [Concomitant]
     Active Substance: CALCITRIOL
  14. ROSUVASTATIN [Concomitant]
     Active Substance: ROSUVASTATIN
  15. SYNTHROID [Concomitant]
     Active Substance: LEVOTHYROXINE SODIUM
  16. LOSARTAN [Concomitant]
     Active Substance: LOSARTAN
  17. DOXEPIN [Concomitant]
     Active Substance: DOXEPIN
  18. GVOKE [Concomitant]
     Active Substance: GLUCAGON
  19. HUMALOG [Concomitant]
     Active Substance: INSULIN LISPRO

REACTIONS (3)
  - Diabetes mellitus [Unknown]
  - Scab [Not Recovered/Not Resolved]
  - Dry skin [Not Recovered/Not Resolved]
